FAERS Safety Report 24630841 (Version 1)
Quarter: 2024Q4

REPORT INFORMATION
  Report Type: Other
  Country: JP (occurrence: JP)
  Receive Date: 20241118
  Receipt Date: 20241118
  Transmission Date: 20250114
  Serious: Yes (Hospitalization, Other)
  Sender: Kanchan Healthcare
  Company Number: JP-Kanchan Healthcare INC-2165255

PATIENT
  Age: 53 Year
  Sex: Female

DRUGS (4)
  1. DEXAMETHASONE [Suspect]
     Active Substance: DEXAMETHASONE
     Indication: COVID-19
  2. BETAMETHASONE [Suspect]
     Active Substance: BETAMETHASONE
  3. CEFTRIAXONE [Concomitant]
     Active Substance: CEFTRIAXONE
  4. LACTATED RINGERS SOLUTION [Concomitant]
     Active Substance: CALCIUM CHLORIDE\POTASSIUM CHLORIDE\SODIUM CHLORIDE\SODIUM LACTATE

REACTIONS (2)
  - Acute generalised exanthematous pustulosis [Unknown]
  - Product use in unapproved indication [Unknown]
